FAERS Safety Report 4795019-5 (Version None)
Quarter: 2005Q4

REPORT INFORMATION
  Report Type: 
  Country: None (occurrence: None)
  Receive Date: 20051006
  Receipt Date: 20050926
  Transmission Date: 20060501
  Serious: Yes (Hospitalization, Other)
  Sender: FDA-Public Use
  Company Number: 2005-08-0797

PATIENT
  Age: 82 Year
  Sex: Female
  Weight: 35 kg

DRUGS (10)
  1. CELESTAMINE TAB [Suspect]
     Indication: DERMATITIS ALLERGIC
     Dosage: 1-2 TAB ORAL; SEE IMAGE
     Route: 048
     Dates: start: 20050708, end: 20050714
  2. CELESTAMINE TAB [Suspect]
     Indication: NEUROGENIC BLADDER
     Dosage: 1-2 TAB ORAL; SEE IMAGE
     Route: 048
     Dates: start: 20050708, end: 20050714
  3. CELESTAMINE TAB [Suspect]
     Indication: DERMATITIS ALLERGIC
     Dosage: 1-2 TAB ORAL; SEE IMAGE
     Route: 048
     Dates: start: 20050715, end: 20050722
  4. CELESTAMINE TAB [Suspect]
     Indication: NEUROGENIC BLADDER
     Dosage: 1-2 TAB ORAL; SEE IMAGE
     Route: 048
     Dates: start: 20050715, end: 20050722
  5. ATARAX-P CAPSULES [Concomitant]
  6. MAGNESIUM OXIDE TABLETS [Concomitant]
  7. POLARAMINE [Concomitant]
  8. BENZALIN TABLETS [Concomitant]
  9. OMEPRAZOLE [Concomitant]
  10. RANITIDINE [Concomitant]

REACTIONS (5)
  - CONJUNCTIVAL HAEMORRHAGE [None]
  - DISEASE RECURRENCE [None]
  - GASTRIC ULCER HAEMORRHAGE [None]
  - HAEMATEMESIS [None]
  - PYREXIA [None]
